FAERS Safety Report 24770967 (Version 1)
Quarter: 2024Q4

REPORT INFORMATION
  Report Type: Spontaneous
  Country: PT (occurrence: None)
  Receive Date: 20241224
  Receipt Date: 20241224
  Transmission Date: 20250114
  Serious: Yes (Other)
  Sender: UNICHEM
  Company Number: PT-Unichem Pharmaceuticals (USA) Inc-UCM202412-001726

PATIENT
  Age: 61 Year
  Sex: Male

DRUGS (3)
  1. METRONIDAZOLE [Suspect]
     Active Substance: METRONIDAZOLE
     Indication: Peptic ulcer
     Dosage: UNKNOWN
  2. AMOXICILLIN [Concomitant]
     Active Substance: AMOXICILLIN
     Indication: Peptic ulcer
     Dosage: UNKNOWN
  3. CLARITHROMYCIN [Concomitant]
     Active Substance: CLARITHROMYCIN
     Indication: Peptic ulcer
     Dosage: UNKNOWN

REACTIONS (2)
  - Frontal lobe epilepsy [Recovered/Resolved]
  - Toxic encephalopathy [Recovered/Resolved]
